FAERS Safety Report 20341267 (Version 1)
Quarter: 2022Q1

REPORT INFORMATION
  Report Type: Spontaneous
  Country: US (occurrence: US)
  Receive Date: 20220117
  Receipt Date: 20220117
  Transmission Date: 20220424
  Serious: No
  Sender: FDA-Public Use
  Company Number: US-SANOFI-00929609

PATIENT
  Sex: Female

DRUGS (1)
  1. DUPIXENT [Suspect]
     Active Substance: DUPILUMAB

REACTIONS (2)
  - Erythema nodosum [Unknown]
  - Injection site erythema [Unknown]
